FAERS Safety Report 6263689-0 (Version None)
Quarter: 2009Q3

REPORT INFORMATION
  Report Type: 
  Country: None (occurrence: None)
  Receive Date: 20090710
  Receipt Date: 20070711
  Transmission Date: 20100115
  Serious: Yes (Other)
  Sender: FDA-Public Use
  Company Number: US-ASTRAZENECA-2006UW25342

PATIENT
  Age: 39 Year
  Sex: Male
  Weight: 91.4 kg

DRUGS (22)
  1. SEROQUEL [Suspect]
     Indication: BIPOLAR DISORDER
     Route: 048
     Dates: start: 19970101, end: 19980101
  2. SEROQUEL [Suspect]
     Route: 048
  3. RISPERDAL [Concomitant]
     Route: 065
     Dates: start: 19930101, end: 19930101
  4. ZYPREXA [Concomitant]
     Route: 065
     Dates: start: 19930101, end: 19980101
  5. UNKNOWN PSYCHIATRIC MEDICATION [Concomitant]
     Route: 065
  6. CARISOPRODOL [Concomitant]
     Route: 048
     Dates: start: 19960103
  7. DOXEPIN HYDROCHLORIDE [Concomitant]
     Route: 048
     Dates: start: 19960424
  8. PAROXETINE HCL [Concomitant]
     Route: 048
     Dates: start: 19980521
  9. LAMOTRIGINE [Concomitant]
     Route: 048
     Dates: start: 19980405
  10. KETOCONAZOLE [Concomitant]
     Route: 048
     Dates: start: 19980615
  11. GLUCOPHAGE [Concomitant]
     Route: 048
  12. GLUCOTROL [Concomitant]
     Route: 048
  13. VASOTEC [Concomitant]
     Route: 048
  14. CLARITIN [Concomitant]
     Route: 048
  15. LIPITOR [Concomitant]
     Route: 048
  16. DILANTIN [Concomitant]
     Route: 048
  17. HUMULIN R [Concomitant]
     Route: 065
  18. LASIX [Concomitant]
     Route: 048
     Dates: start: 19960509
  19. DIAZEPAM [Concomitant]
     Route: 048
     Dates: start: 19960105
  20. ELAVIL [Concomitant]
     Route: 048
  21. DEPAKOTE [Concomitant]
     Route: 048
     Dates: start: 19960205
  22. NEURONTIN [Concomitant]
     Route: 048

REACTIONS (4)
  - BLOOD CHOLESTEROL INCREASED [None]
  - DIABETES MELLITUS [None]
  - DIABETIC NEUROPATHY [None]
  - TYPE 1 DIABETES MELLITUS [None]
